FAERS Safety Report 7070691-8 (Version None)
Quarter: 2010Q4

REPORT INFORMATION
  Report Type: 
  Country: None (occurrence: None)
  Receive Date: 20101027
  Receipt Date: 20101027
  Transmission Date: 20110411
  Serious: Yes (Death, Other)
  Sender: FDA-Public Use
  Company Number: None

PATIENT
  Age: 41 Year
  Sex: Male
  Weight: 88.4514 kg

DRUGS (1)
  1. PROZAC [Suspect]

REACTIONS (2)
  - DRUG WITHDRAWAL SYNDROME [None]
  - HOMICIDE [None]
